FAERS Safety Report 6819520-5 (Version None)
Quarter: 2010Q3

REPORT INFORMATION
  Report Type: 
  Country: None (occurrence: None)
  Receive Date: 20100707
  Receipt Date: 20100701
  Transmission Date: 20110219
  Serious: Yes (Hospitalization, Other)
  Sender: FDA-Public Use
  Company Number: PHHY2009CL46329

PATIENT
  Age: 69 Year
  Sex: Male

DRUGS (2)
  1. TAREG D [Suspect]
     Indication: HYPERTENSION
     Dosage: 1 (160/12.5 MG) TABLET PER DAY
  2. DILATREND [Concomitant]

REACTIONS (4)
  - COMPARTMENT SYNDROME [None]
  - SENSORY LOSS [None]
  - SURGERY [None]
  - THROMBOSIS [None]
